FAERS Safety Report 4433641-6 (Version None)
Quarter: 2004Q3

REPORT INFORMATION
  Report Type: 
  Country: None (occurrence: None)
  Receive Date: 20040826
  Receipt Date: 20040819
  Transmission Date: 20050211
  Serious: Yes (Other)
  Sender: FDA-Public Use
  Company Number: PHBS2004CA10922

PATIENT
  Age: 67 Year
  Sex: Female

DRUGS (5)
  1. ESTRADERM [Suspect]
     Indication: HORMONE REPLACEMENT THERAPY
     Dosage: 25 UG/DAY
     Route: 062
     Dates: start: 20000101, end: 20030901
  2. NEORAL [Suspect]
     Indication: RENAL TRANSPLANT
     Dosage: 75 MG, BID
     Dates: start: 20000101
  3. ATACAND [Concomitant]
  4. CELLCEPT [Concomitant]
  5. PREDNISONE [Concomitant]

REACTIONS (3)
  - HYPERTENSION [None]
  - OOPHORECTOMY [None]
  - OVARIAN CYST [None]
